FAERS Safety Report 5252550-6 (Version None)
Quarter: 2007Q1

REPORT INFORMATION
  Report Type: 
  Country: None (occurrence: None)
  Receive Date: 20070227
  Receipt Date: 20070227
  Transmission Date: 20070707
  Serious: Yes (Hospitalization)
  Sender: FDA-Public Use
  Company Number: None

PATIENT
  Sex: Male
  Weight: 84.8226 kg

DRUGS (2)
  1. PERPHENAZINE [Suspect]
     Indication: SCHIZOPHRENIA
     Dosage: 12MG  HS  PO
     Route: 048
     Dates: start: 20061013, end: 20061024
  2. TRIFLUOPERAZINE    2MG [Suspect]
     Dosage: 2MG  TID  PO
     Route: 048

REACTIONS (2)
  - LIP PAIN [None]
  - LIP SWELLING [None]
